FAERS Safety Report 8791358 (Version 1)
Quarter: 2012Q4

REPORT INFORMATION
  Report Type: Spontaneous
  Country: US (occurrence: None)
  Receive Date: 20120914
  Receipt Date: 20120914
  Transmission Date: 20130627
  Serious: Yes (Hospitalization)
  Sender: FDA-Public Use
  Company Number: None

PATIENT
  Age: 79 Year
  Weight: 52.62 kg

DRUGS (1)
  1. CELEBREX [Suspect]
     Route: 048
     Dates: start: 2011, end: 20120831

REACTIONS (1)
  - Retinal haemorrhage [None]
